FAERS Safety Report 13068509 (Version 1)
Quarter: 2016Q4

REPORT INFORMATION
  Report Type: Spontaneous
  Country: DE (occurrence: DE)
  Receive Date: 20161228
  Receipt Date: 20161228
  Transmission Date: 20170207
  Serious: Yes (Other)
  Sender: FDA-Public Use
  Company Number: GXKR2016DE005897

PATIENT
  Age: 75 Year
  Sex: Female

DRUGS (1)
  1. VERAHEXAL RETARD [Suspect]
     Active Substance: VERAPAMIL HYDROCHLORIDE
     Indication: PRODUCT USED FOR UNKNOWN INDICATION
     Dosage: 120 MG-0-240MG
     Route: 048

REACTIONS (3)
  - Gastrointestinal inflammation [Unknown]
  - Intestinal haemorrhage [Unknown]
  - Abdominal pain [Unknown]
